FAERS Safety Report 13403772 (Version 1)
Quarter: 2017Q2

REPORT INFORMATION
  Report Type: Report from Study
  Country: US (occurrence: US)
  Receive Date: 20170405
  Receipt Date: 20170405
  Transmission Date: 20170830
  Serious: Yes (Hospitalization)
  Sender: FDA-Public Use
  Company Number: PHEH2017US009828

PATIENT
  Age: 66 Year
  Sex: Female

DRUGS (1)
  1. MYFORTIC [Suspect]
     Active Substance: MYCOPHENOLATE SODIUM
     Indication: PRODUCT USED FOR UNKNOWN INDICATION
     Dosage: 360 MG, QID
     Route: 048

REACTIONS (3)
  - Encephalopathy [Unknown]
  - Mental status changes [Unknown]
  - Viral infection [Unknown]

NARRATIVE: CASE EVENT DATE: 20170302
